FAERS Safety Report 7651622-6 (Version None)
Quarter: 2011Q3

REPORT INFORMATION
  Report Type: 
  Country: None (occurrence: None)
  Receive Date: 20110802
  Receipt Date: 20110720
  Transmission Date: 20111222
  Serious: Yes (Other)
  Sender: FDA-Public Use
  Company Number: US-ELI_LILLY_AND_COMPANY-US201106006367

PATIENT
  Age: 63 Year
  Sex: Female

DRUGS (5)
  1. THYROID PREPARATIONS [Concomitant]
  2. ACYCLOVIR [Concomitant]
  3. ACLOVIR [Concomitant]
  4. DIAZEPAM [Concomitant]
  5. CYMBALTA [Suspect]
     Indication: FIBROMYALGIA
     Dosage: 60 MG, QD
     Dates: start: 20040101

REACTIONS (4)
  - URINARY TRACT INFECTION [None]
  - POLLAKIURIA [None]
  - RENAL IMPAIRMENT [None]
  - GLAUCOMA [None]
